FAERS Safety Report 4427721-9 (Version None)
Quarter: 2004Q3

REPORT INFORMATION
  Report Type: 
  Country: None (occurrence: None)
  Receive Date: 20040812
  Receipt Date: 20040806
  Transmission Date: 20050211
  Serious: Yes (Other)
  Sender: FDA-Public Use
  Company Number: 2004-07-1044

PATIENT
  Age: 35 Year
  Sex: Male

DRUGS (2)
  1. GENTAMICIN SULFATE [Suspect]
     Indication: ACNE
     Dosage: TOPICAL
     Route: 061
     Dates: start: 20040702, end: 20040703
  2. MINOMYCIN [Concomitant]

REACTIONS (2)
  - DERMATITIS CONTACT [None]
  - URTICARIA [None]
